FAERS Safety Report 11467080 (Version 1)
Quarter: 2015Q3

REPORT INFORMATION
  Report Type: Spontaneous
  Country: BR (occurrence: BR)
  Receive Date: 20150908
  Receipt Date: 20150908
  Transmission Date: 20151125
  Serious: Yes (Other)
  Sender: FDA-Public Use
  Company Number: BR-ROCHE-1629369

PATIENT
  Age: 81 Year
  Sex: Female
  Weight: 52 kg

DRUGS (3)
  1. MELATONIN [Suspect]
     Active Substance: MELATONIN
     Indication: PRODUCT USED FOR UNKNOWN INDICATION
     Route: 065
  2. RIVOTRIL [Suspect]
     Active Substance: CLONAZEPAM
     Indication: INSOMNIA
     Dosage: 2.5 MG/ML
     Route: 065
     Dates: start: 2005, end: 201507
  3. COLLAGEN [Concomitant]
     Active Substance: COLLAGEN
     Dosage: FOR 8 YEARS (UNSPECIFIED PERIOD)
     Route: 065

REACTIONS (13)
  - Head injury [Unknown]
  - Nervousness [Not Recovered/Not Resolved]
  - Crying [Unknown]
  - Fall [Unknown]
  - Pollakiuria [Unknown]
  - Injury [Unknown]
  - Self-medication [Unknown]
  - Back pain [Not Recovered/Not Resolved]
  - Memory impairment [Recovering/Resolving]
  - Joint injury [Unknown]
  - Local swelling [Unknown]
  - Weight decreased [Unknown]
  - Constipation [Unknown]

NARRATIVE: CASE EVENT DATE: 201411
